FAERS Safety Report 5715743-7 (Version None)
Quarter: 2008Q2

REPORT INFORMATION
  Report Type: 
  Country: None (occurrence: None)
  Receive Date: 20080424
  Receipt Date: 20080421
  Transmission Date: 20081010
  Serious: Yes (Other)
  Sender: FDA-Public Use
  Company Number: GB-BRISTOL-MYERS SQUIBB COMPANY-14158281

PATIENT
  Age: 15 Year
  Sex: Male

DRUGS (1)
  1. PERFLUTREN [Suspect]
     Indication: CORNEAL OEDEMA
     Dosage: 0.2ML OF 14% PERFLUTREN
     Route: 031

REACTIONS (2)
  - INTRAOCULAR PRESSURE INCREASED [None]
  - PUPIL FIXED [None]
